FAERS Safety Report 12776092 (Version 2)
Quarter: 2016Q4

REPORT INFORMATION
  Report Type: Report from Study
  Country: CA (occurrence: CA)
  Receive Date: 20160923
  Receipt Date: 20161004
  Transmission Date: 20170207
  Serious: Yes (Hospitalization)
  Sender: FDA-Public Use
  Company Number: CA-AMGEN-CANCT2016121462

PATIENT
  Age: 79 Year
  Sex: Male
  Weight: 77.9 kg

DRUGS (10)
  1. DIAZEPAM. [Concomitant]
     Active Substance: DIAZEPAM
     Dosage: 5 MG, QD, BEDTIEM, AS NEEDED, FOR 180 DAYS
     Route: 048
     Dates: start: 20160415
  2. PREFILLED AUTOINJECTOR/PEN [Suspect]
     Active Substance: DEVICE
     Indication: DYSLIPIDAEMIA
  3. NORVASC [Concomitant]
     Active Substance: AMLODIPINE BESYLATE
     Dosage: 5 MG, QD,  FOR 90 DAYS
     Dates: start: 20160420
  4. AMG 145 [Suspect]
     Active Substance: EVOLOCUMAB
     Indication: DYSLIPIDAEMIA
  5. SERC [Concomitant]
     Active Substance: BETAHISTINE HYDROCHLORIDE
     Dosage: 24 MG, BID, AS NEEDED, FOR 30 DAYS
     Dates: start: 20160815
  6. PREFILLED AUTOINJECTOR/PEN [Suspect]
     Active Substance: DEVICE
     Indication: HYPERLIPIDAEMIA
     Dosage: UNK UNK, QMO
     Route: 058
     Dates: start: 20131230
  7. ASA [Concomitant]
     Active Substance: ASPIRIN
     Dosage: 81 MG, QD, FOR THREE MONTHS
     Dates: start: 20121126
  8. AMG 145 [Suspect]
     Active Substance: EVOLOCUMAB
     Indication: HYPERLIPIDAEMIA
     Dosage: 320 MG, QMO
     Route: 058
     Dates: start: 20131230
  9. CRESTOR [Concomitant]
     Active Substance: ROSUVASTATIN CALCIUM
     Dosage: 5 MG, QD, FOR 90DAYS
     Dates: start: 20160420
  10. RATIO-OXYCOCET [Concomitant]
     Active Substance: ACETAMINOPHEN\OXYCODONE HYDROCHLORIDE
     Dosage: 2 TABLETS, QD, AS NEEDED FOR 120 DAYS
     Dates: start: 20160613

REACTIONS (3)
  - Interstitial lung disease [Not Recovered/Not Resolved]
  - Pleural effusion [Not Recovered/Not Resolved]
  - Pericardial effusion [Not Recovered/Not Resolved]

NARRATIVE: CASE EVENT DATE: 2016
